FAERS Safety Report 26062164 (Version 1)
Quarter: 2025Q4

REPORT INFORMATION
  Report Type: Spontaneous
  Country: EU (occurrence: EU)
  Receive Date: 20251119
  Receipt Date: 20251119
  Transmission Date: 20260117
  Serious: Yes (Hospitalization, Other)
  Sender: ROCHE
  Company Number: EU-ROCHE-10000433636

PATIENT
  Age: 57 Year
  Sex: Male

DRUGS (5)
  1. TECENTRIQ [Suspect]
     Active Substance: ATEZOLIZUMAB
     Indication: Neuroendocrine tumour of the lung
     Dosage: FORMULATION-4 ZYKLEN IV, 2 ZYKLEN SC?AFTER 4 CYCLES OF COMBINATION THERAPY WITH CARBOPLATIN/ETOPOSID
     Route: 042
     Dates: start: 20250305
  2. TECENTRIQ [Suspect]
     Active Substance: ATEZOLIZUMAB
     Route: 058
  3. CARBOPLATIN [Suspect]
     Active Substance: CARBOPLATIN
     Indication: Neuroendocrine tumour of the lung
     Route: 065
  4. ETOPOSIDE [Suspect]
     Active Substance: ETOPOSIDE
     Indication: Neuroendocrine tumour of the lung
     Route: 065
  5. TOPOTECAN [Concomitant]
     Active Substance: TOPOTECAN HYDROCHLORIDE
     Dosage: 2 L
     Route: 048

REACTIONS (6)
  - Rash [Recovered/Resolved]
  - Blood pressure decreased [Recovered/Resolved]
  - Metastases to liver [Unknown]
  - Swelling face [Recovered/Resolved]
  - Head discomfort [Recovered/Resolved]
  - Swelling [Recovered/Resolved]
